FAERS Safety Report 9127312 (Version 2)
Quarter: 2014Q2

REPORT INFORMATION
  Report Type: Report from Study
  Country: US (occurrence: US)
  Receive Date: 20130125
  Receipt Date: 20140422
  Transmission Date: 20141212
  Serious: Yes (Hospitalization)
  Sender: FDA-Public Use
  Company Number: PHHY2012US102159

PATIENT
  Age: 47 Year
  Sex: Female
  Weight: 52.15 kg

DRUGS (13)
  1. GILENYA [Suspect]
     Indication: RELAPSING-REMITTING MULTIPLE SCLEROSIS
     Dosage: 0.5 MG, QD
     Route: 048
     Dates: start: 20110128, end: 20120801
  2. GILENYA [Suspect]
     Dosage: 0.5 MG, QD
     Route: 048
     Dates: start: 20110215, end: 20120911
  3. GILENYA [Suspect]
     Dosage: 0.5 MG, QD
     Route: 048
     Dates: start: 201111
  4. GILENYA [Suspect]
     Dosage: 0.5 MG, QD
     Route: 048
     Dates: start: 20111228, end: 20120312
  5. GILENYA [Suspect]
     Dosage: 0.5 MG, QD
     Route: 048
  6. METHYLPREDNISOLONE [Concomitant]
  7. PREDNISONE [Concomitant]
     Route: 048
  8. VIVELLE-DOT [Concomitant]
  9. PROMETRIUM [Concomitant]
     Route: 048
  10. CRESTOR [Concomitant]
  11. STEROIDS NOS [Concomitant]
     Dates: start: 201108, end: 201111
  12. STEROIDS NOS [Concomitant]
     Dates: start: 20111125, end: 20111226
  13. PLAVIX [Concomitant]

REACTIONS (15)
  - Eye infection [Unknown]
  - Eye discharge [Recovering/Resolving]
  - Eye pain [Recovering/Resolving]
  - Eye swelling [Unknown]
  - Visual acuity reduced [Unknown]
  - Implant site reaction [Unknown]
  - Breast pain [Recovering/Resolving]
  - Toxicity to various agents [Recovering/Resolving]
  - Nasal oedema [Recovering/Resolving]
  - Visual impairment [Unknown]
  - Nausea [Unknown]
  - Muscular weakness [Unknown]
  - Sensory disturbance [Unknown]
  - Vision blurred [Unknown]
  - Headache [Unknown]
